FAERS Safety Report 9684622 (Version 2)
Quarter: 2013Q4

REPORT INFORMATION
  Report Type: Spontaneous
  Country: US (occurrence: DE)
  Receive Date: 20131112
  Receipt Date: 20131127
  Transmission Date: 20140711
  Serious: Yes (Hospitalization, Other)
  Sender: FDA-Public Use
  Company Number: DE-FRI-1000051022

PATIENT
  Age: 58 Year
  Sex: Male
  Weight: 103 kg

DRUGS (1)
  1. ROFLUMILAST [Suspect]
     Dosage: 250 MCG
     Dates: start: 20131025, end: 20131029

REACTIONS (2)
  - Pneumonia [Not Recovered/Not Resolved]
  - Off label use [Recovered/Resolved]
